FAERS Safety Report 5665322-5 (Version None)
Quarter: 2008Q1

REPORT INFORMATION
  Report Type: 
  Country: None (occurrence: None)
  Receive Date: 20080314
  Receipt Date: 20080110
  Transmission Date: 20080703
  Serious: No
  Sender: FDA-Public Use
  Company Number: US-ABBOTT-07P-163-0423048-00

PATIENT
  Sex: Female
  Weight: 61.29 kg

DRUGS (31)
  1. HUMIRA [Suspect]
     Indication: CROHN'S DISEASE
     Route: 058
     Dates: start: 20070926, end: 20070926
  2. HUMIRA [Suspect]
     Route: 058
  3. HUMIRA [Suspect]
     Route: 058
     Dates: end: 20071031
  4. BETACAROTINE [Concomitant]
     Indication: DRUG USE FOR UNKNOWN INDICATION
  5. MULTI-VITAMIN [Concomitant]
     Indication: DRUG USE FOR UNKNOWN INDICATION
  6. NICOTINAM. W/PYRIDOXI. HCL/RIBOFL./THIAM. HCL [Concomitant]
     Indication: DRUG USE FOR UNKNOWN INDICATION
  7. FISH OIL [Concomitant]
     Indication: DRUG USE FOR UNKNOWN INDICATION
  8. ZINC [Concomitant]
     Indication: DRUG USE FOR UNKNOWN INDICATION
  9. NAPROXEN SODIUM [Concomitant]
     Indication: DRUG USE FOR UNKNOWN INDICATION
  10. ALPRAZOLAM [Concomitant]
     Indication: PANIC DISORDER
     Route: 048
  11. NABUMETONE [Concomitant]
     Indication: NECK PAIN
     Route: 048
  12. GABAPENTIN [Concomitant]
     Indication: PREMEDICATION
     Route: 048
  13. MESALAMINE [Concomitant]
     Indication: CROHN'S DISEASE
     Route: 048
  14. SERETIDE [Concomitant]
     Indication: DRUG USE FOR UNKNOWN INDICATION
  15. ZOLPIDEM TARTRATE [Concomitant]
     Indication: INSOMNIA
     Route: 048
  16. YOHIMBINE [Concomitant]
     Indication: FEMALE SEXUAL DYSFUNCTION
  17. FLUCONAZOLE [Concomitant]
     Indication: DRUG USE FOR UNKNOWN INDICATION
  18. DICYCLOMINE HCL [Concomitant]
     Indication: DRUG USE FOR UNKNOWN INDICATION
  19. FLUOXETINE [Concomitant]
     Indication: DRUG USE FOR UNKNOWN INDICATION
  20. OLANZAPINE [Concomitant]
     Indication: DRUG USE FOR UNKNOWN INDICATION
  21. FLUTICASONE [Concomitant]
     Indication: NASAL CONGESTION
     Route: 048
  22. HYDROCODONE BITARTRATE [Concomitant]
     Indication: PAIN
  23. IBUPROFEN [Concomitant]
     Indication: ENDOMETRIOSIS
     Route: 048
  24. AZATHIOPRINE [Concomitant]
     Indication: CROHN'S DISEASE
     Route: 048
  25. MECLIZINE [Concomitant]
     Indication: DIZZINESS
     Route: 048
  26. PRAMIPEXOLE DIHYDROCHLORIDE [Concomitant]
     Indication: RESTLESS LEGS SYNDROME
     Route: 048
  27. LANSOPRAZOLE [Concomitant]
     Indication: CROHN'S DISEASE
     Route: 048
  28. TOPIRAMATE [Concomitant]
     Indication: DRUG USE FOR UNKNOWN INDICATION
     Route: 048
  29. POLYTHENE GLYCOL 3350 POWDER [Concomitant]
     Indication: DRUG USE FOR UNKNOWN INDICATION
  30. CYMBYAX [Concomitant]
     Indication: DEPRESSION
     Route: 048
  31. LITHIUM CARBONATE [Concomitant]
     Indication: DEPRESSION
     Route: 048

REACTIONS (2)
  - INFLUENZA LIKE ILLNESS [None]
  - NAUSEA [None]
